FAERS Safety Report 9153357 (Version 1)
Quarter: 2013Q1

REPORT INFORMATION
  Report Type: Spontaneous
  Country: DK (occurrence: None)
  Receive Date: 20130204
  Receipt Date: 20130204
  Transmission Date: 20140127
  Serious: Yes (Hospitalization, Disabling)
  Sender: FDA-Public Use
  Company Number: 2013MA000826

PATIENT
  Age: 40 Year
  Sex: Male

DRUGS (13)
  1. CITALOPRAM HYDROBROMIDE [Suspect]
     Indication: ANXIETY
     Route: 048
  2. DOXYCYCLINE [Concomitant]
  3. FISH OIL CONCENTRATE [Concomitant]
  4. LEVOMENTHOL [Concomitant]
  5. GLUCOSAMINE WITH CHONDROITIN [Concomitant]
  6. PARACETAMOL [Concomitant]
  7. INSULIN HUMAN [Concomitant]
  8. DEXTROMETHORPHAN [Concomitant]
  9. DIPHENHYDRAMINE [Concomitant]
  10. PROMETHAZINE [Concomitant]
  11. COENZYME Q10 [Concomitant]
  12. ECHINACEA [Concomitant]
  13. NIACIN [Concomitant]

REACTIONS (8)
  - Hyperglycaemia [None]
  - Injection site haemorrhage [None]
  - Injection site bruising [None]
  - Viral infection [None]
  - Prothrombin level abnormal [None]
  - Influenza [None]
  - Sinusitis [None]
  - Diabetes mellitus [None]
